FAERS Safety Report 16988223 (Version 2)
Quarter: 2020Q3

REPORT INFORMATION
  Report Type: Report from Study
  Country: JP (occurrence: JP)
  Receive Date: 20191104
  Receipt Date: 20200128
  Transmission Date: 20201104
  Serious: Yes (Other)
  Sender: FDA-Public Use
  Company Number: JP-ROCHE-2406537

PATIENT
  Age: 88 Year
  Sex: Female

DRUGS (3)
  1. PRALIA [Concomitant]
     Active Substance: DENOSUMAB
     Route: 058
     Dates: start: 20161216
  2. BONALON [Concomitant]
     Active Substance: ALENDRONATE SODIUM
     Indication: OSTEOPOROSIS
     Route: 048
     Dates: start: 200805, end: 20140314
  3. IBANDRONIC ACID. [Suspect]
     Active Substance: IBANDRONIC ACID
     Indication: OSTEOPOROSIS
     Route: 058
     Dates: start: 201403, end: 20161216

REACTIONS (4)
  - Osteonecrosis of jaw [Recovering/Resolving]
  - Periodontitis [Unknown]
  - Off label use [Unknown]
  - Intentional product use issue [Unknown]

NARRATIVE: CASE EVENT DATE: 201701
